FAERS Safety Report 4985814-1 (Version None)
Quarter: 2006Q2

REPORT INFORMATION
  Report Type: 
  Country: None (occurrence: None)
  Receive Date: 20060421
  Receipt Date: 20060413
  Transmission Date: 20061013
  Serious: Yes (Death, Hospitalization)
  Sender: FDA-Public Use
  Company Number: 2006043807

PATIENT
  Age: 92 Year
  Sex: Female
  Weight: 40 kg

DRUGS (9)
  1. ALDACTONE [Suspect]
     Indication: CARDIAC FAILURE
     Dosage: 25 MG (25 MG, 1 IN 1 D), ORAL
     Route: 048
     Dates: start: 20060306, end: 20060324
  2. ZESTRIL [Suspect]
     Indication: CARDIAC FAILURE
     Dosage: 20 MG (20 MG, 1 IN 1 D), ORAL
     Route: 048
     Dates: start: 19970920, end: 20060324
  3. FLUINDIONE [Concomitant]
  4. FUROSEMIDE [Concomitant]
  5. BISOPROLOL FUMARATE [Concomitant]
  6. ZOPICLONE [Concomitant]
  7. HALOPERIDOL [Concomitant]
  8. ACEBUTOLOL HYDROCHLORIDE [Concomitant]
  9. DIGOXIN [Concomitant]

REACTIONS (5)
  - BLOOD CREATININE INCREASED [None]
  - DEHYDRATION [None]
  - GENERAL PHYSICAL HEALTH DETERIORATION [None]
  - HYPERKALAEMIA [None]
  - RENAL FAILURE [None]
